FAERS Safety Report 6105322-4 (Version None)
Quarter: 2009Q1

REPORT INFORMATION
  Report Type: 
  Country: None (occurrence: None)
  Receive Date: 20090227
  Receipt Date: 20081223
  Transmission Date: 20090719
  Serious: Yes (Hospitalization, Other)
  Sender: FDA-Public Use
  Company Number: RB-7319-2008

PATIENT
  Age: 52 Year
  Sex: Male

DRUGS (2)
  1. SUBOXONE [Suspect]
     Indication: DRUG DEPENDENCE
     Dosage: 12 MG SUBLINGUAL
     Route: 060
     Dates: start: 20081101, end: 20081217
  2. KLONOPIN [Concomitant]

REACTIONS (2)
  - AMNESIA [None]
  - OVERDOSE [None]
